FAERS Safety Report 9617990 (Version 1)
Quarter: 2013Q4

REPORT INFORMATION
  Report Type: Spontaneous
  Country: US (occurrence: US)
  Receive Date: 20131011
  Receipt Date: 20131011
  Transmission Date: 20140711
  Serious: Yes (Hospitalization, Other)
  Sender: FDA-Public Use
  Company Number: US-RB-059328-13

PATIENT
  Age: 21 Year
  Sex: Female

DRUGS (3)
  1. SUBOXONE FILM [Suspect]
     Indication: PRODUCT USED FOR UNKNOWN INDICATION
     Dosage: SUBOXONE FILM; DOSING DETAILS UNKNOWN
     Route: 065
     Dates: end: 2013
  2. BUPRENORPHINE GENERIC [Suspect]
     Indication: DRUG DEPENDENCE
     Route: 060
     Dates: start: 20130930
  3. NICOTINE [Concomitant]
     Indication: PRODUCT USED FOR UNKNOWN INDICATION
     Dosage: ONE PACK PER DAY
     Route: 055

REACTIONS (4)
  - Suicidal ideation [Unknown]
  - Drug detoxification [Unknown]
  - Maternal exposure during pregnancy [Not Recovered/Not Resolved]
  - Drug withdrawal syndrome [Not Recovered/Not Resolved]
